FAERS Safety Report 20190377 (Version 1)
Quarter: 2021Q4

REPORT INFORMATION
  Report Type: Spontaneous
  Country: IT (occurrence: IT)
  Receive Date: 20211215
  Receipt Date: 20211215
  Transmission Date: 20220303
  Serious: Yes (Disabling, Other)
  Sender: FDA-Public Use
  Company Number: IT-009507513-2112ITA005243

PATIENT
  Sex: Male

DRUGS (4)
  1. PEMBROLIZUMAB [Suspect]
     Active Substance: PEMBROLIZUMAB
     Indication: Metastases to central nervous system
     Dosage: 2 MILLIGRAM/KILOGRAM, Q3W
     Dates: start: 201804, end: 201904
  2. PEMBROLIZUMAB [Suspect]
     Active Substance: PEMBROLIZUMAB
     Indication: Metastases to gastrointestinal tract
     Dosage: FLAT DOSE
     Dates: start: 201904, end: 201905
  3. PEMBROLIZUMAB [Suspect]
     Active Substance: PEMBROLIZUMAB
     Indication: Metastases to lung
  4. PEMBROLIZUMAB [Suspect]
     Active Substance: PEMBROLIZUMAB
     Indication: Metastatic malignant melanoma

REACTIONS (6)
  - Pulmonary toxicity [Recovered/Resolved]
  - Intestinal obstruction [Unknown]
  - Spinal pain [Unknown]
  - Cytomegalovirus infection [Unknown]
  - Organising pneumonia [Recovered/Resolved]
  - Renal cyst [Unknown]
